FAERS Safety Report 7357339-X (Version None)
Quarter: 2011Q1

REPORT INFORMATION
  Report Type: 
  Country: None (occurrence: None)
  Receive Date: 20110308
  Receipt Date: 20110221
  Transmission Date: 20110831
  Serious: No
  Sender: FDA-Public Use
  Company Number: SPI201100054

PATIENT
  Age: 59 Year
  Sex: Female
  Weight: 90.7 kg

DRUGS (2)
  1. AMITIZA [Suspect]
     Indication: CONSTIPATION
     Dosage: 24 MCG, BID, ORAL
     Route: 048
     Dates: start: 20110215, end: 20110217
  2. JANUMET [Concomitant]

REACTIONS (2)
  - CHEST PAIN [None]
  - DYSPNOEA [None]
